FAERS Safety Report 9470921 (Version 1)
Quarter: 2013Q3

REPORT INFORMATION
  Report Type: Spontaneous
  Country: US (occurrence: US)
  Receive Date: 20130822
  Receipt Date: 20130822
  Transmission Date: 20140515
  Serious: No
  Sender: FDA-Public Use
  Company Number: US-SANOFI-AVENTIS-2013SA059427

PATIENT
  Age: 6 Year
  Sex: Male

DRUGS (1)
  1. AUVI-Q [Suspect]

REACTIONS (6)
  - Feeling cold [Not Recovered/Not Resolved]
  - Injection site haemorrhage [Unknown]
  - Injection site urticaria [Unknown]
  - Fatigue [Unknown]
  - Insomnia [Unknown]
  - Accidental exposure to product by child [Unknown]
